FAERS Safety Report 24603516 (Version 1)
Quarter: 2024Q4

REPORT INFORMATION
  Report Type: Spontaneous
  Country: US (occurrence: US)
  Receive Date: 20241111
  Receipt Date: 20241111
  Transmission Date: 20250115
  Serious: No
  Sender: PERRIGO
  Company Number: US-PERRIGO-24US000062

PATIENT
  Sex: Female
  Weight: 68.027 kg

DRUGS (2)
  1. NICOTINE POLACRILEX [Suspect]
     Active Substance: NICOTINE
     Indication: Smoking cessation therapy
     Dosage: 4 MG, PRN
     Route: 002
     Dates: start: 202301, end: 20231229
  2. FUROSEMIDE [Suspect]
     Active Substance: FUROSEMIDE
     Indication: Cardiac disorder
     Dosage: 20 MG, QD
     Route: 048
     Dates: start: 202311, end: 2023

REACTIONS (11)
  - Salivary hypersecretion [Not Recovered/Not Resolved]
  - Saliva altered [Not Recovered/Not Resolved]
  - Dysphagia [Recovering/Resolving]
  - Dysphonia [Not Recovered/Not Resolved]
  - Irritability [Not Recovered/Not Resolved]
  - Product after taste [Recovering/Resolving]
  - Ageusia [Recovering/Resolving]
  - Fatigue [Recovering/Resolving]
  - Throat irritation [Recovering/Resolving]
  - Nausea [Recovering/Resolving]
  - Dyspepsia [Not Recovered/Not Resolved]

NARRATIVE: CASE EVENT DATE: 20230101
